FAERS Safety Report 18436368 (Version 3)
Quarter: 2020Q4

REPORT INFORMATION
  Report Type: Spontaneous
  Country: US (occurrence: US)
  Receive Date: 20201028
  Receipt Date: 20201214
  Transmission Date: 20210114
  Serious: No
  Sender: FDA-Public Use
  Company Number: US-PFIZER INC-2020415889

PATIENT
  Age: 63 Year
  Sex: Male

DRUGS (2)
  1. XELJANZ XR [Suspect]
     Active Substance: TOFACITINIB CITRATE
     Dosage: 11 MG, DAILY
     Route: 048
     Dates: start: 202009
  2. XELJANZ XR [Suspect]
     Active Substance: TOFACITINIB CITRATE
     Indication: RHEUMATOID ARTHRITIS
     Dosage: UNK
     Dates: start: 2018

REACTIONS (6)
  - Condition aggravated [Unknown]
  - Loss of personal independence in daily activities [Recovering/Resolving]
  - Peripheral swelling [Unknown]
  - Arthralgia [Recovering/Resolving]
  - Blood cholesterol increased [Unknown]
  - Depression [Not Recovered/Not Resolved]
